FAERS Safety Report 9549268 (Version 1)
Quarter: 2013Q3

REPORT INFORMATION
  Report Type: Spontaneous
  Country: US (occurrence: US)
  Receive Date: 20130924
  Receipt Date: 20130924
  Transmission Date: 20140515
  Serious: No
  Sender: FDA-Public Use
  Company Number: US-TEVA-434164USA

PATIENT
  Sex: Female
  Weight: 111.23 kg

DRUGS (8)
  1. NUVIGIL [Suspect]
     Indication: NARCOLEPSY
  2. NUVIGIL [Suspect]
     Indication: SLEEP APNOEA SYNDROME
  3. STEROID NOS [Concomitant]
     Indication: SCIATICA
  4. STEROID NOS [Concomitant]
     Indication: BACK DISORDER
  5. NITROFURANTOIN [Concomitant]
     Indication: URINARY TRACT INFECTION
     Dosage: 200 MILLIGRAM DAILY;
  6. JOINT JUICE GLUCOSAMINE/CHONDROITIN [Concomitant]
     Indication: ARTHROPATHY
  7. JOINT JUICE GLUCOSAMINE/CHONDROITIN [Concomitant]
     Indication: BONE DISORDER
  8. ORGANIC LIFE VITAMIN [Concomitant]

REACTIONS (2)
  - Cholelithiasis [Unknown]
  - Somnolence [Not Recovered/Not Resolved]
